FAERS Safety Report 25367281 (Version 2)
Quarter: 2025Q3

REPORT INFORMATION
  Report Type: Spontaneous
  Country: EU (occurrence: EU)
  Receive Date: 20250528
  Receipt Date: 20250701
  Transmission Date: 20251021
  Serious: Yes (Death)
  Sender: RANBAXY
  Company Number: EU-SUN PHARMACEUTICAL INDUSTRIES LTD-2025RR-509337

PATIENT
  Age: 74 Year
  Sex: Female
  Weight: 64 kg

DRUGS (6)
  1. ROSUVASTATIN [Suspect]
     Active Substance: ROSUVASTATIN
     Indication: Prophylaxis
     Dosage: 5 MILLIGRAM, DAILY
     Route: 048
     Dates: start: 20240205, end: 20240310
  2. HYDROCHLOROTHIAZIDE\TELMISARTAN [Suspect]
     Active Substance: HYDROCHLOROTHIAZIDE\TELMISARTAN
     Indication: Hypertension
     Dosage: 1 DOSAGE FORM, DAILY
     Route: 048
     Dates: start: 20240205, end: 20240310
  3. OZEMPIC [Suspect]
     Active Substance: SEMAGLUTIDE
     Indication: Type 2 diabetes mellitus
     Dosage: 0.25 MILLIGRAM, 1/WEEK
     Route: 058
     Dates: start: 20231017, end: 20231117
  4. OZEMPIC [Suspect]
     Active Substance: SEMAGLUTIDE
     Dosage: 0.5 MILLIGRAM, 1/WEEK
     Route: 065
     Dates: start: 20231117, end: 20240205
  5. OZEMPIC [Suspect]
     Active Substance: SEMAGLUTIDE
     Dosage: 1 MILLIGRAM, 1/WEEK
     Route: 065
     Dates: start: 20240205, end: 20240310
  6. ASPIRIN [Suspect]
     Active Substance: ASPIRIN
     Indication: Product used for unknown indication
     Dosage: 100 MILLIGRAM, DAILY
     Route: 048
     Dates: end: 20240313

REACTIONS (1)
  - Pancreatitis acute [Fatal]

NARRATIVE: CASE EVENT DATE: 20240310
